FAERS Safety Report 7815352-X (Version None)
Quarter: 2011Q4

REPORT INFORMATION
  Report Type: 
  Country: None (occurrence: None)
  Receive Date: 20111005
  Receipt Date: 20110922
  Transmission Date: 20120403
  Serious: Yes (Other)
  Sender: FDA-Public Use
  Company Number: US-144802

PATIENT
  Sex: Female

DRUGS (3)
  1. WINRHO SDF LIQUID [Suspect]
  2. WINRHO SDF LIQUID [Suspect]
     Indication: IDIOPATHIC THROMBOCYTOPENIC PURPURA
     Dosage: 70 UG/KG TOTAL INTRAVENOUS, INTRAVENOUS
     Route: 042
     Dates: start: 20090312, end: 20090312
  3. WINRHO SDF LIQUID [Suspect]
     Indication: IDIOPATHIC THROMBOCYTOPENIC PURPURA
     Dosage: 70 UG/KG TOTAL INTRAVENOUS, INTRAVENOUS
     Route: 042
     Dates: start: 20090312, end: 20090312

REACTIONS (6)
  - RENAL FAILURE ACUTE [None]
  - HAEMOGLOBINAEMIA [None]
  - INTRAVASCULAR HAEMOLYSIS [None]
  - HAEMOGLOBINURIA [None]
  - DISSEMINATED INTRAVASCULAR COAGULATION [None]
  - PIGMENT NEPHROPATHY [None]
